FAERS Safety Report 6211340-8 (Version None)
Quarter: 2009Q2

REPORT INFORMATION
  Report Type: 
  Country: None (occurrence: None)
  Receive Date: 20090522
  Receipt Date: 20090122
  Transmission Date: 20091009
  Serious: No
  Sender: FDA-Public Use
  Company Number: 8041634

PATIENT
  Age: 41 Year
  Sex: Female
  Weight: 77.2 kg

DRUGS (9)
  1. CIMZIA [Suspect]
     Indication: CROHN'S DISEASE
     Dosage: 400 MG SC
     Route: 058
     Dates: start: 20090112
  2. METHOTREXATE [Concomitant]
  3. ACIPHEX [Concomitant]
  4. PROZAC [Concomitant]
  5. AMITRIPTYLINE [Concomitant]
  6. FOLIC ACID [Concomitant]
  7. VITAMIN D [Concomitant]
  8. NORVASC [Concomitant]
  9. VICODIN [Concomitant]

REACTIONS (4)
  - ABDOMINAL PAIN UPPER [None]
  - ARTHRALGIA [None]
  - DIARRHOEA [None]
  - FATIGUE [None]
